FAERS Safety Report 26181589 (Version 1)
Quarter: 2025Q4

REPORT INFORMATION
  Report Type: Spontaneous
  Country: PR (occurrence: PR)
  Receive Date: 20251221
  Receipt Date: 20251221
  Transmission Date: 20260118
  Serious: No
  Sender: ANI
  Company Number: PR-ANIPHARMA-2025-PR-000124

PATIENT
  Age: 54 Year
  Sex: Female
  Weight: 70.31 kg

DRUGS (12)
  1. CORTICOTROPIN [Suspect]
     Active Substance: CORTICOTROPIN
     Indication: Product used for unknown indication
     Dates: start: 20251111
  2. PROTONIX [Concomitant]
     Active Substance: PANTOPRAZOLE SODIUM
  3. ZYRTEC [Concomitant]
     Active Substance: CETIRIZINE HYDROCHLORIDE
  4. PLAVIX [Concomitant]
     Active Substance: CLOPIDOGREL BISULFATE
  5. LISINOPRIL [Concomitant]
     Active Substance: LISINOPRIL
  6. LEVOTHYROXINE [Concomitant]
     Active Substance: LEVOTHYROXINE
  7. CYMBALTA [Concomitant]
     Active Substance: DULOXETINE HYDROCHLORIDE
  8. WELLBUTRIN [Concomitant]
     Active Substance: BUPROPION HYDROCHLORIDE
  9. MODAFINIL [Concomitant]
     Active Substance: MODAFINIL
  10. ZEPBOUND [Concomitant]
     Active Substance: TIRZEPATIDE
  11. BOTOX [Concomitant]
     Active Substance: ONABOTULINUMTOXINA
  12. PEPCID [Concomitant]
     Active Substance: FAMOTIDINE

REACTIONS (2)
  - Insomnia [Unknown]
  - Contraindicated product administered [Not Recovered/Not Resolved]

NARRATIVE: CASE EVENT DATE: 20251111
